FAERS Safety Report 22146857 (Version 1)
Quarter: 2023Q1

REPORT INFORMATION
  Report Type: Spontaneous
  Country: US (occurrence: US)
  Receive Date: 20230328
  Receipt Date: 20230328
  Transmission Date: 20230418
  Serious: Yes (Hospitalization)
  Sender: FDA-Public Use
  Company Number: US-MYLANLABS-2023M1032002

PATIENT
  Age: 84 Year
  Sex: Male
  Weight: 97 kg

DRUGS (5)
  1. HEPARIN [Interacting]
     Active Substance: HEPARIN SODIUM
     Indication: Haemorrhage
     Dosage: UNK, DOSE: 5000 UNITS
     Route: 065
  2. HEPARIN [Interacting]
     Active Substance: HEPARIN SODIUM
     Dosage: UNK, TOTAL DOSE RECEIVED: 21000 UNITS
     Route: 065
  3. ANDEXANET ALFA [Interacting]
     Active Substance: ANDEXANET ALFA
     Indication: Procoagulant therapy
     Dosage: 400 MILLIGRAM, BOLUS
     Route: 042
  4. ANDEXANET ALFA [Interacting]
     Active Substance: ANDEXANET ALFA
     Dosage: 4 MILLIGRAM, QMINUTE (INFUSION)
     Route: 042
  5. HUMAN PLASMA [Concomitant]
     Active Substance: HUMAN PLASMA
     Indication: Haemorrhage
     Dosage: UNK
     Route: 065

REACTIONS (3)
  - Drug interaction [Unknown]
  - Thrombosis [Unknown]
  - Anticoagulation drug level below therapeutic [Unknown]
